FAERS Safety Report 18330985 (Version 3)
Quarter: 2022Q1

REPORT INFORMATION
  Report Type: Spontaneous
  Country: FR (occurrence: FR)
  Receive Date: 20200930
  Receipt Date: 20220112
  Transmission Date: 20220423
  Serious: Yes (Hospitalization, Other)
  Sender: FDA-Public Use
  Company Number: FR-JNJFOC-20200737962

PATIENT
  Age: 51 Year
  Sex: Male

DRUGS (4)
  1. INFLIXIMAB [Suspect]
     Active Substance: INFLIXIMAB
     Indication: Behcet^s syndrome
     Dosage: UNKNOWN
     Route: 065
     Dates: start: 20181207, end: 20190517
  2. CELLCEPT [Suspect]
     Active Substance: MYCOPHENOLATE MOFETIL
     Indication: Behcet^s syndrome
     Dosage: UNKNOWN
     Route: 065
     Dates: start: 2014, end: 2017
  3. REMICADE [Suspect]
     Active Substance: INFLIXIMAB
     Indication: Product used for unknown indication
     Dosage: UNKNOWN
     Route: 042
  4. REMICADE [Suspect]
     Active Substance: INFLIXIMAB
     Dosage: UNKNOWN
     Route: 065

REACTIONS (22)
  - Hepatic cytolysis [Unknown]
  - Malaise [Unknown]
  - Acute kidney injury [Not Recovered/Not Resolved]
  - Rectal haemorrhage [Unknown]
  - Vomiting [Unknown]
  - Myocardial necrosis [Unknown]
  - Urinary tract infection [Unknown]
  - Diarrhoea [Not Recovered/Not Resolved]
  - Hypovolaemic shock [Unknown]
  - Syncope [Unknown]
  - Clostridium difficile colitis [Unknown]
  - Endocarditis [Unknown]
  - Behcet^s syndrome [Unknown]
  - Implantable defibrillator insertion [Unknown]
  - Liver abscess [Unknown]
  - Supraventricular tachycardia [Unknown]
  - Weight increased [Unknown]
  - Impaired work ability [Unknown]
  - Staphylococcal infection [Unknown]
  - Off label use [Unknown]
  - Product use in unapproved indication [Unknown]
  - Incorrect product dosage form administered [Unknown]

NARRATIVE: CASE EVENT DATE: 20190529
